FAERS Safety Report 8302537-1 (Version None)
Quarter: 2012Q2

REPORT INFORMATION
  Report Type: 
  Country: None (occurrence: None)
  Receive Date: 20120411
  Receipt Date: 20120329
  Transmission Date: 20120825
  Serious: Yes (Hospitalization)
  Sender: FDA-Public Use
  Company Number: 2012031833

PATIENT
  Age: 40 Year
  Sex: Female

DRUGS (5)
  1. CALCIUM CARBONATE [Concomitant]
  2. PRIVIGEN [Suspect]
     Indication: MUSCULAR WEAKNESS
     Dosage: 80 G,
     Route: 042
     Dates: start: 20120218, end: 20120220
  3. DOMPERIDONE (DOMPERIDONE) [Concomitant]
  4. MESTINON [Concomitant]
  5. PREDNISONE TAB [Concomitant]

REACTIONS (2)
  - OFF LABEL USE [None]
  - MENINGITIS ASEPTIC [None]
